FAERS Safety Report 7518032-3 (Version None)
Quarter: 2011Q2

REPORT INFORMATION
  Report Type: 
  Country: None (occurrence: None)
  Receive Date: 20110523
  Receipt Date: 20110509
  Transmission Date: 20111010
  Serious: Yes (Other)
  Sender: FDA-Public Use
  Company Number: 2011MA005695

PATIENT
  Age: 17 Year
  Sex: Male

DRUGS (2)
  1. CLONIDINE HCL [Suspect]
     Indication: INSOMNIA
     Dosage: 0.1 MG, HS
  2. CONCERTA [Concomitant]

REACTIONS (7)
  - ATTENTION DEFICIT/HYPERACTIVITY DISORDER [None]
  - CONDITION AGGRAVATED [None]
  - DRUG INTERACTION [None]
  - PETIT MAL EPILEPSY [None]
  - DEPRESSION [None]
  - IMPULSIVE BEHAVIOUR [None]
  - CONVULSIVE THRESHOLD LOWERED [None]
